FAERS Safety Report 21025478 (Version 3)
Quarter: 2022Q3

REPORT INFORMATION
  Report Type: Spontaneous
  Country: VN (occurrence: VN)
  Receive Date: 20220630
  Receipt Date: 20220804
  Transmission Date: 20221027
  Serious: Yes (Hospitalization, Other)
  Sender: FDA-Public Use
  Company Number: VN-JNJFOC-20220646961

PATIENT
  Age: 82 Year
  Sex: Female

DRUGS (3)
  1. IMBRUVICA [Suspect]
     Active Substance: IBRUTINIB
     Indication: Diffuse large B-cell lymphoma
     Dosage: 140MG X 4 TABLETS
     Route: 048
     Dates: start: 20220603
  2. IMBRUVICA [Suspect]
     Active Substance: IBRUTINIB
     Dosage: 140MGX90
     Route: 048
  3. RITUXIMAB [Concomitant]
     Active Substance: RITUXIMAB
     Indication: Product used for unknown indication

REACTIONS (4)
  - Small intestinal haemorrhage [Recovered/Resolved]
  - Drug ineffective [Unknown]
  - Diffuse large B-cell lymphoma [Unknown]
  - Off label use [Unknown]

NARRATIVE: CASE EVENT DATE: 20220614
